FAERS Safety Report 6723733-0 (Version None)
Quarter: 2010Q2

REPORT INFORMATION
  Report Type: 
  Country: None (occurrence: None)
  Receive Date: 20100511
  Receipt Date: 20100429
  Transmission Date: 20101027
  Serious: Yes (Life-Threatening)
  Sender: FDA-Public Use
  Company Number: 1000013712

PATIENT
  Age: 63 Year
  Sex: Male

DRUGS (3)
  1. LEXAPRO [Suspect]
     Indication: DEPRESSION
     Dosage: 10 MG, ORAL
     Route: 048
     Dates: start: 20100319
  2. KEPPRA [Suspect]
     Indication: EPILEPSY
     Dosage: 250 MG, ORAL
     Route: 048
  3. CYRESS CAPSULE [Concomitant]

REACTIONS (1)
  - HOMICIDE [None]
